FAERS Safety Report 12213472 (Version 1)
Quarter: 2016Q1

REPORT INFORMATION
  Report Type: Spontaneous
  Country: US (occurrence: None)
  Receive Date: 20160325
  Receipt Date: 20160325
  Transmission Date: 20160526
  Serious: Yes (Other)
  Sender: FDA-Public Use
  Company Number: None

PATIENT
  Age: 70 Year
  Sex: Female

DRUGS (1)
  1. ENBREL [Suspect]
     Active Substance: ETANERCEPT
     Indication: PSORIASIS
     Dosage: 50MG/ML WEEKLY SQ
     Route: 058
     Dates: start: 201502

REACTIONS (2)
  - Pulmonary granuloma [None]
  - Oedema [None]

NARRATIVE: CASE EVENT DATE: 20160323
